FAERS Safety Report 8242127-2 (Version None)
Quarter: 2012Q1

REPORT INFORMATION
  Report Type: 
  Country: None (occurrence: None)
  Receive Date: 20120314
  Receipt Date: 20100512
  Transmission Date: 20120608
  Serious: No
  Sender: FDA-Public Use
  Company Number: PHHY2010US31042

PATIENT
  Sex: Female

DRUGS (1)
  1. FANAPT [Suspect]
     Dosage: 6 MG, BID

REACTIONS (2)
  - SWELLING [None]
  - WHEEZING [None]
